FAERS Safety Report 9817266 (Version 1)
Quarter: 2014Q1

REPORT INFORMATION
  Report Type: Spontaneous
  Country: CZ (occurrence: CZ)
  Receive Date: 20140115
  Receipt Date: 20140115
  Transmission Date: 20141002
  Serious: Yes (Death)
  Sender: FDA-Public Use
  Company Number: CZ-PFIZER INC-2014011993

PATIENT
  Age: 56 Year
  Sex: Male

DRUGS (1)
  1. METHYLPREDNISOLONE [Suspect]
     Indication: SARCOMA
     Dosage: UNK
     Dates: start: 200810

REACTIONS (3)
  - Disease progression [Fatal]
  - Sarcoma [Fatal]
  - Bronchopneumonia [Fatal]
